FAERS Safety Report 4777286-7 (Version None)
Quarter: 2005Q3

REPORT INFORMATION
  Report Type: 
  Country: None (occurrence: None)
  Receive Date: 20050915
  Receipt Date: 20050908
  Transmission Date: 20060218
  Serious: Yes (Other)
  Sender: FDA-Public Use
  Company Number: GBWYE916618AUG05

PATIENT
  Age: 29 Year
  Sex: Male

DRUGS (1)
  1. EFFEXOR XR [Suspect]
     Indication: DEPRESSION
     Dosage: 75 MG 1X PER 1 DAY ORAL
     Route: 048
     Dates: start: 20041208

REACTIONS (6)
  - DRY THROAT [None]
  - INSOMNIA [None]
  - MYDRIASIS [None]
  - STOMACH DISCOMFORT [None]
  - TRISMUS [None]
  - YAWNING [None]
